FAERS Safety Report 8827647 (Version 4)
Quarter: 2012Q4

REPORT INFORMATION
  Report Type: 
  Country: US (occurrence: US)
  Receive Date: 20121005
  Receipt Date: 20121213
  Transmission Date: 20130627
  Serious: Yes (Hospitalization, Other)
  Sender: FDA-Public Use
  Company Number: US-ASTRAZENECA-2010SE28297

PATIENT
  Age: 56 Year
  Sex: Female

DRUGS (5)
  1. ATACAND [Suspect]
     Route: 048
  2. PULMICORT RESPULES [Suspect]
     Route: 055
  3. UNKNOWN [Suspect]
     Indication: LUNG DISORDER
     Route: 065
  4. ALBUTEROL BROMIDE [Concomitant]
  5. PERFORMIST [Concomitant]

REACTIONS (14)
  - Renal cyst [Unknown]
  - Renal cyst haemorrhage [Unknown]
  - Leukaemia [Unknown]
  - Asthma [Unknown]
  - Chronic obstructive pulmonary disease [Unknown]
  - Emphysema [Unknown]
  - Bronchitis chronic [Unknown]
  - Dyspnoea [Unknown]
  - Arthritis [Unknown]
  - Gait disturbance [Unknown]
  - Hypertension [Unknown]
  - Asthma [Unknown]
  - Renal disorder [Unknown]
  - Off label use [Unknown]
